FAERS Safety Report 7210532-9 (Version None)
Quarter: 2011Q1

REPORT INFORMATION
  Report Type: 
  Country: None (occurrence: None)
  Receive Date: 20110105
  Receipt Date: 20101229
  Transmission Date: 20110831
  Serious: Yes (Hospitalization)
  Sender: FDA-Public Use
  Company Number: BR-ROCHE-750920

PATIENT
  Sex: Female

DRUGS (16)
  1. BLINDED WX-671 [Suspect]
     Indication: BREAST CANCER
     Route: 048
     Dates: start: 20100728, end: 20101014
  2. METAMIZOLE SODIUM [Concomitant]
     Dates: start: 20100914, end: 20100922
  3. POLARAMINE [Concomitant]
     Indication: PROPHYLAXIS
     Dates: start: 20101013, end: 20101014
  4. NEBACETIN [Concomitant]
     Dosage: FREQ: QD
     Dates: start: 20100818, end: 20101014
  5. PHYTOMENADION [Concomitant]
     Dates: start: 20100930, end: 20101006
  6. MAREVAN [Concomitant]
     Dates: start: 20101008, end: 20101014
  7. VITAMIN K1 [Concomitant]
     Dates: start: 20100930, end: 20101006
  8. DIPYRONE [Concomitant]
     Dates: start: 20100924, end: 20100924
  9. CAPECITABINE [Suspect]
     Indication: BREAST CANCER
     Route: 048
     Dates: start: 20100728, end: 20101014
  10. NEOSALDINA [Concomitant]
     Indication: HEADACHE
     Dates: start: 20100924
  11. TYLEX [Concomitant]
     Dates: start: 20101013, end: 20101014
  12. OMEPRAZOLE [Concomitant]
     Dates: start: 20101013, end: 20101014
  13. LISADOR [Concomitant]
     Dates: start: 20100914, end: 20100922
  14. MAREVAN [Concomitant]
     Dates: start: 20100911, end: 20100929
  15. POLARAMINE EXPECTORANTE [Concomitant]
     Dates: start: 20101013, end: 20101014
  16. DEXAMETHASONE [Concomitant]
     Indication: PROPHYLAXIS
     Dates: start: 20101013, end: 20101014

REACTIONS (1)
  - PERIPHERAL ARTERIAL OCCLUSIVE DISEASE [None]
